FAERS Safety Report 18612264 (Version 1)
Quarter: 2020Q4

REPORT INFORMATION
  Report Type: Spontaneous
  Country: ES (occurrence: ES)
  Receive Date: 20201214
  Receipt Date: 20201214
  Transmission Date: 20210114
  Serious: Yes (Hospitalization)
  Sender: FDA-Public Use
  Company Number: ES-PURACAP PHARMACEUTICAL LLC-2020EPC00370

PATIENT
  Age: 5 Year
  Sex: Male

DRUGS (2)
  1. ACETAMINOPHEN. [Suspect]
     Active Substance: ACETAMINOPHEN
     Dosage: 750 MG, 1X/DAY(INTRAVENOUS)
     Route: 042
  2. ACETAMINOPHEN. [Suspect]
     Active Substance: ACETAMINOPHEN
     Indication: PYREXIA
     Dosage: 750 MG, 1X/DAY
     Route: 065

REACTIONS (1)
  - SJS-TEN overlap [Recovered/Resolved]
